FAERS Safety Report 9694813 (Version 1)
Quarter: 2013Q4

REPORT INFORMATION
  Report Type: Spontaneous
  Country: IT (occurrence: IT)
  Receive Date: 20131119
  Receipt Date: 20131119
  Transmission Date: 20140711
  Serious: Yes (Other)
  Sender: FDA-Public Use
  Company Number: IT-ROCHE-1303038

PATIENT
  Age: 80 Year
  Sex: Male

DRUGS (1)
  1. ZELBORAF [Suspect]
     Indication: ACRAL LENTIGINOUS MELANOMA STAGE IV
     Route: 048
     Dates: start: 20131001

REACTIONS (7)
  - Asthenia [Recovering/Resolving]
  - Dermatitis [Recovering/Resolving]
  - Dysgeusia [Recovering/Resolving]
  - Pyrexia [Recovering/Resolving]
  - Ear pruritus [Recovering/Resolving]
  - Keratosis pilaris [Recovering/Resolving]
  - Pain in extremity [Recovering/Resolving]
